FAERS Safety Report 5287810-6 (Version None)
Quarter: 2007Q2

REPORT INFORMATION
  Report Type: 
  Country: None (occurrence: None)
  Receive Date: 20070402
  Receipt Date: 20070402
  Transmission Date: 20071010
  Serious: Yes (Other)
  Sender: FDA-Public Use
  Company Number: None

PATIENT
  Sex: Male
  Weight: 77.5 kg

DRUGS (3)
  1. VANCOMYCIN [Suspect]
     Indication: PNEUMONIA
     Dosage: 1250MG IM Q12 HOURS IV
     Route: 042
     Dates: start: 20070321, end: 20070324
  2. VANCOMYCIN [Suspect]
     Indication: SEPSIS
     Dosage: 1250MG IM Q12 HOURS IV
     Route: 042
     Dates: start: 20070321, end: 20070324
  3. ZOSYN [Concomitant]

REACTIONS (2)
  - INFUSION RELATED REACTION [None]
  - TINNITUS [None]
